FAERS Safety Report 21740395 (Version 1)
Quarter: 2022Q4

REPORT INFORMATION
  Report Type: Spontaneous
  Country: US (occurrence: None)
  Receive Date: 20221216
  Receipt Date: 20221216
  Transmission Date: 20230113
  Serious: Yes (Life-Threatening)
  Sender: FDA-Public Use
  Company Number: None

PATIENT
  Age: 34 Month
  Sex: Female
  Weight: 15.6 kg

DRUGS (5)
  1. ALBUTEROL [Suspect]
     Active Substance: ALBUTEROL
     Indication: Bronchospasm
     Dates: start: 20221214, end: 20221214
  2. IPRATROPIUM [Concomitant]
     Active Substance: IPRATROPIUM
     Dates: start: 20221214, end: 20221214
  3. DEXAMETHASONE [Concomitant]
     Active Substance: DEXAMETHASONE
     Dates: start: 20221213, end: 20221213
  4. methylprednisilone [Concomitant]
     Dates: start: 20221214, end: 20221214
  5. OSELTAMIVIR [Concomitant]
     Active Substance: OSELTAMIVIR
     Dates: start: 20221214

REACTIONS (8)
  - Influenza [None]
  - Acute respiratory failure [None]
  - Bronchospasm [None]
  - Tachypnoea [None]
  - Metabolic acidosis [None]
  - Acute respiratory failure [None]
  - Hypokalaemia [None]
  - Hyperglycaemia [None]

NARRATIVE: CASE EVENT DATE: 20221214
